FAERS Safety Report 17001386 (Version 1)
Quarter: 2019Q4

REPORT INFORMATION
  Report Type: Report from Study
  Country: CA (occurrence: CA)
  Receive Date: 20191106
  Receipt Date: 20191106
  Transmission Date: 20200122
  Serious: Yes (Hospitalization, Other)
  Sender: FDA-Public Use
  Company Number: CA-BEH-2019108904

PATIENT
  Age: 53 Year
  Sex: Male

DRUGS (4)
  1. HAEMATE P [Suspect]
     Active Substance: ANTIHEMOPHILIC FACTOR HUMAN
     Indication: VON WILLEBRAND^S DISEASE
     Dosage: 4000 INTERNATIONAL UNIT, OD
     Route: 058
  2. HAEMATE P [Suspect]
     Active Substance: ANTIHEMOPHILIC FACTOR HUMAN
     Indication: VON WILLEBRAND^S DISEASE
     Dosage: 4000 INTERNATIONAL UNIT, OD
     Route: 058
  3. HAEMATE P [Suspect]
     Active Substance: ANTIHEMOPHILIC FACTOR HUMAN
     Dosage: 4000 INTERNATIONAL UNIT, BIW (EVERY THREE DAYS)
     Route: 058
  4. HAEMATE P [Suspect]
     Active Substance: ANTIHEMOPHILIC FACTOR HUMAN
     Dosage: 4000 INTERNATIONAL UNIT, BIW (EVERY THREE DAYS)
     Route: 058

REACTIONS (3)
  - No adverse event [Unknown]
  - Urinary bladder haemorrhage [Recovering/Resolving]
  - Product use issue [Unknown]

NARRATIVE: CASE EVENT DATE: 20191027
